FAERS Safety Report 10161804 (Version 1)
Quarter: 2014Q2

REPORT INFORMATION
  Report Type: Spontaneous
  Country: US (occurrence: US)
  Receive Date: 20140509
  Receipt Date: 20140509
  Transmission Date: 20141212
  Serious: Yes (Other)
  Sender: FDA-Public Use
  Company Number: US-ROCHE-1395013

PATIENT
  Age: 58 Year
  Sex: Male

DRUGS (2)
  1. TAMIFLU [Suspect]
     Indication: INFLUENZA
     Dosage: GEL CAPLETS
     Route: 048
     Dates: start: 20140410
  2. PANTOPRAZOL [Concomitant]
     Route: 065

REACTIONS (6)
  - Syncope [Recovered/Resolved]
  - Catatonia [Unknown]
  - Pneumonia [Recovering/Resolving]
  - Influenza like illness [Unknown]
  - Neck injury [Not Recovered/Not Resolved]
  - Dizziness [Unknown]
